FAERS Safety Report 23175098 (Version 1)
Quarter: 2023Q4

REPORT INFORMATION
  Report Type: Report from Study
  Country: US (occurrence: US)
  Receive Date: 20231112
  Receipt Date: 20231112
  Transmission Date: 20240109
  Serious: Yes (Hospitalization, Other)
  Sender: FDA-Public Use
  Company Number: US-ABBVIE-5489751

PATIENT
  Age: 70 Year
  Sex: Female

DRUGS (1)
  1. SKYRIZI [Suspect]
     Active Substance: RISANKIZUMAB-RZAA
     Indication: Psoriasis
     Route: 058
     Dates: start: 20200213

REACTIONS (2)
  - Gastric ulcer [Recovering/Resolving]
  - Hiatus hernia [Recovering/Resolving]

NARRATIVE: CASE EVENT DATE: 20231101
